FAERS Safety Report 13353221 (Version 3)
Quarter: 2017Q2

REPORT INFORMATION
  Report Type: Spontaneous
  Country: JP (occurrence: JP)
  Receive Date: 20170321
  Receipt Date: 20170512
  Transmission Date: 20170830
  Serious: Yes (Hospitalization, Other)
  Sender: FDA-Public Use
  Company Number: JP-009507513-1703JPN001175J

PATIENT
  Age: 44 Year
  Sex: Male

DRUGS (3)
  1. PROPECIA [Suspect]
     Active Substance: FINASTERIDE
     Dosage: UNK, PRN
     Route: 048
  2. PROPECIA [Suspect]
     Active Substance: FINASTERIDE
     Dosage: UNK, PRN
     Route: 048
     Dates: end: 201703
  3. PROPECIA [Suspect]
     Active Substance: FINASTERIDE
     Indication: ANDROGENETIC ALOPECIA
     Dosage: UNK, PRN
     Route: 048
     Dates: start: 2014

REACTIONS (1)
  - Cardiac failure [Recovering/Resolving]

NARRATIVE: CASE EVENT DATE: 20170310
